FAERS Safety Report 14929458 (Version 1)
Quarter: 2018Q2

REPORT INFORMATION
  Report Type: Spontaneous
  Country: US (occurrence: US)
  Receive Date: 20180523
  Receipt Date: 20180523
  Transmission Date: 20180711
  Serious: No
  Sender: FDA-Public Use
  Company Number: US-009507513-1805USA010352

PATIENT
  Sex: Female

DRUGS (1)
  1. NUVARING [Suspect]
     Active Substance: ETHINYL ESTRADIOL\ETONOGESTREL
     Indication: CONTRACEPTION
     Dosage: REPLACE EVERY 3 WEEKS
     Route: 067

REACTIONS (4)
  - Discomfort [Unknown]
  - Device breakage [Recovered/Resolved]
  - Inappropriate schedule of drug administration [Unknown]
  - Pain [Unknown]
